FAERS Safety Report 10311632 (Version 3)
Quarter: 2021Q3

REPORT INFORMATION
  Report Type: Report from Study
  Country: ES (occurrence: ES)
  Receive Date: 20140717
  Receipt Date: 20210730
  Transmission Date: 20211014
  Serious: Yes (Other)
  Sender: FDA-Public Use
  Company Number: ES-TEVA-494871USA

PATIENT
  Age: 74 Year
  Sex: Male

DRUGS (3)
  1. BENDAMUSTINE HYDROCHLORIDE. [Suspect]
     Active Substance: BENDAMUSTINE HYDROCHLORIDE
     Indication: MANTLE CELL LYMPHOMA STAGE IV
     Dosage: 100?90 MG/M2 ON DAYS DAY 1?2 IN 28 DAY CYCLE, 6 CYCLES
     Route: 042
  2. RITUXIMAB. [Suspect]
     Active Substance: RITUXIMAB
     Dosage: (EVERY 8 WEEKS FOR 2 YEARS)
     Route: 042
  3. RITUXIMAB. [Suspect]
     Active Substance: RITUXIMAB
     Indication: MANTLE CELL LYMPHOMA STAGE IV
     Dosage: (ON DAY 1 28?DAY CYCLES, 6 CYCLES)
     Route: 065

REACTIONS (4)
  - CD4 lymphocytes decreased [Unknown]
  - Cholecystitis [Unknown]
  - Escherichia infection [Unknown]
  - Product use issue [Unknown]
